FAERS Safety Report 8198613-7 (Version None)
Quarter: 2012Q1

REPORT INFORMATION
  Report Type: 
  Country: None (occurrence: None)
  Receive Date: 20120309
  Receipt Date: 20120113
  Transmission Date: 20120608
  Serious: No
  Sender: FDA-Public Use
  Company Number: US-AMGEN-USASP2012002520

PATIENT
  Age: 84 Year
  Sex: Female

DRUGS (11)
  1. ONE A DAY [Concomitant]
  2. IMDUR [Concomitant]
     Dosage: UNK
  3. IBUPROFEN (ADVIL) [Concomitant]
     Dosage: UNK
  4. CORTAID [Concomitant]
     Dosage: UNK
  5. PROLIA [Suspect]
     Indication: OSTEOPOROSIS POSTMENOPAUSAL
     Dosage: 60 MG, Q6MO
     Dates: start: 20120112
  6. VITAMIN E [Concomitant]
     Dosage: UNK
  7. TYLENOL [Concomitant]
     Dosage: UNK
  8. ANTACID [Concomitant]
     Dosage: UNK
  9. GELNIQUE [Concomitant]
     Dosage: UNK
  10. COZAAR [Concomitant]
     Dosage: UNK
  11. PLAVIX [Concomitant]
     Dosage: UNK

REACTIONS (4)
  - PRURITUS [None]
  - RASH [None]
  - HYPERSENSITIVITY [None]
  - FATIGUE [None]
